FAERS Safety Report 4808638-4 (Version None)
Quarter: 2005Q4

REPORT INFORMATION
  Report Type: 
  Country: None (occurrence: None)
  Receive Date: 20051021
  Receipt Date: 20040604
  Transmission Date: 20060501
  Serious: No
  Sender: FDA-Public Use
  Company Number: AU_040607787

PATIENT
  Age: 44 Year
  Sex: Female

DRUGS (1)
  1. ZYPREXA [Suspect]
     Indication: MAJOR DEPRESSION
     Dosage: 10 MG DAY
     Route: 048
     Dates: start: 20020101

REACTIONS (1)
  - MENSTRUATION IRREGULAR [None]
